FAERS Safety Report 4273213-X (Version None)
Quarter: 2004Q1

REPORT INFORMATION
  Report Type: 
  Country: None (occurrence: None)
  Receive Date: 20040116
  Receipt Date: 20031222
  Transmission Date: 20041129
  Serious: Yes (Life-Threatening)
  Sender: FDA-Public Use
  Company Number: PHBS2003JP14404

PATIENT
  Age: 50 Year
  Sex: Female

DRUGS (3)
  1. LAMISIL [Suspect]
     Indication: NAIL TINEA
     Dosage: 125 MG/D
     Route: 048
     Dates: start: 19990913, end: 19991101
  2. KEFLEX [Suspect]
     Indication: TOOTHACHE
     Route: 048
     Dates: start: 19991101
  3. LORCAM [Suspect]
     Indication: TOOTHACHE
     Route: 048
     Dates: start: 19991101

REACTIONS (3)
  - FEELING ABNORMAL [None]
  - LOSS OF CONSCIOUSNESS [None]
  - TOOTHACHE [None]
